FAERS Safety Report 6477205-1 (Version None)
Quarter: 2009Q4

REPORT INFORMATION
  Report Type: 
  Country: None (occurrence: None)
  Receive Date: 20091207
  Receipt Date: 20091126
  Transmission Date: 20100525
  Serious: Yes (Disabling)
  Sender: FDA-Public Use
  Company Number: PHHY2009IT52141

PATIENT
  Sex: Female

DRUGS (6)
  1. ZOMETA [Suspect]
     Indication: METASTASES TO BONE
     Dosage: 4 MG, QMO
     Dates: start: 20020701, end: 20070801
  2. ZOMETA [Suspect]
     Dosage: 4 MG, QMO
     Route: 042
     Dates: start: 20020701, end: 20070801
  3. MELPHALAN [Concomitant]
  4. PREDNISONE [Concomitant]
  5. VELCADE [Concomitant]
     Dosage: 3.5 MG, UNK
     Route: 042
  6. SOLDESAM [Concomitant]

REACTIONS (3)
  - DENTAL OPERATION [None]
  - OSTEONECROSIS [None]
  - SEQUESTRECTOMY [None]
